FAERS Safety Report 9029387 (Version 2)
Quarter: 2014Q3

REPORT INFORMATION
  Report Type: Spontaneous
  Country: MX (occurrence: MX)
  Receive Date: 20130125
  Receipt Date: 20140805
  Transmission Date: 20150326
  Serious: Yes (Other)
  Sender: FDA-Public Use
  Company Number: PHHY2013MX006639

PATIENT
  Age: 52 Year
  Sex: Female

DRUGS (2)
  1. CO-DIOVAN [Suspect]
     Active Substance: HYDROCHLOROTHIAZIDE\VALSARTAN
     Indication: NEOPLASM MALIGNANT
     Dosage: 1 DF(160/12.5 MG), DAILY
     Route: 048
     Dates: start: 200904
  2. CO-DIOVAN [Suspect]
     Active Substance: HYDROCHLOROTHIAZIDE\VALSARTAN
     Indication: OFF LABEL USE
     Dosage: 1 DF(160/25), DAILY
     Route: 048
     Dates: start: 201211

REACTIONS (1)
  - Cholelithiasis [Recovered/Resolved]

NARRATIVE: CASE EVENT DATE: 201101
